FAERS Safety Report 10900537 (Version 1)
Quarter: 2015Q1

REPORT INFORMATION
  Report Type: Spontaneous
  Country: AU (occurrence: AU)
  Receive Date: 20150310
  Receipt Date: 20150310
  Transmission Date: 20150721
  Serious: Yes (Hospitalization, Other)
  Sender: FDA-Public Use
  Company Number: AU-ABBVIE-15K-008-1357095-00

PATIENT
  Sex: Female

DRUGS (2)
  1. HUMIRA [Suspect]
     Active Substance: ADALIMUMAB
     Indication: PRODUCT USED FOR UNKNOWN INDICATION
     Route: 065
     Dates: start: 2009, end: 2011
  2. INFLIXIMAB [Suspect]
     Active Substance: INFLIXIMAB
     Indication: CONDITION AGGRAVATED
     Route: 065

REACTIONS (3)
  - Systemic lupus erythematosus [Recovered/Resolved]
  - Condition aggravated [Unknown]
  - Hospitalisation [Unknown]

NARRATIVE: CASE EVENT DATE: 2011
